FAERS Safety Report 21853058 (Version 1)
Quarter: 2023Q1

REPORT INFORMATION
  Report Type: Spontaneous
  Country: GB (occurrence: GB)
  Receive Date: 20230112
  Receipt Date: 20230112
  Transmission Date: 20230417
  Serious: Yes (Disabling, Other)
  Sender: FDA-Public Use
  Company Number: None

PATIENT
  Age: 47 Year
  Sex: Female
  Weight: 85 kg

DRUGS (4)
  1. AMITRIPTYLINE [Suspect]
     Active Substance: AMITRIPTYLINE
     Indication: Pain in extremity
     Dates: start: 20221007
  2. RAMIPRIL [Suspect]
     Active Substance: RAMIPRIL
     Indication: Pain in extremity
     Route: 042
     Dates: start: 20221007
  3. ACETAMINOPHEN [Concomitant]
     Active Substance: ACETAMINOPHEN
     Dosage: TAKE 1-2 TABLETS EVERY 4-6 HOURS WHEN REQUIRED
     Dates: start: 20180403
  4. IBUPROFEN [Concomitant]
     Active Substance: IBUPROFEN
     Dosage: WITH OR AFTER FOOD
     Dates: start: 20220215

REACTIONS (1)
  - Cough [Recovering/Resolving]

NARRATIVE: CASE EVENT DATE: 20221007
